APPROVED DRUG PRODUCT: STOXIL
Active Ingredient: IDOXURIDINE
Strength: 0.5%
Dosage Form/Route: OINTMENT;OPHTHALMIC
Application: N015868 | Product #001
Applicant: GLAXOSMITHKLINE
Approved: Approved Prior to Jan 1, 1982 | RLD: No | RS: No | Type: DISCN